FAERS Safety Report 9361532 (Version 1)
Quarter: 2013Q2

REPORT INFORMATION
  Report Type: Other
  Country: DE (occurrence: DE)
  Receive Date: 20130621
  Receipt Date: 20130621
  Transmission Date: 20140414
  Serious: Yes (Other)
  Sender: FDA-Public Use
  Company Number: DE-NICOBRDEVP-2013-09818

PATIENT
  Sex: Female
  Weight: 63 kg

DRUGS (2)
  1. CITALOPRAM HYDROBROMIDE (UNKNOWN) [Suspect]
     Indication: PANIC ATTACK
     Dosage: 10 MG, DAILY
     Route: 048
     Dates: start: 20130105, end: 20130128
  2. CITALOPRAM HYDROBROMIDE (UNKNOWN) [Suspect]
     Dosage: 20 MG, DAILY
     Route: 048
     Dates: start: 20130128, end: 20130131

REACTIONS (11)
  - Anxiety [Recovering/Resolving]
  - Confusional state [Recovering/Resolving]
  - Disturbance in attention [Recovering/Resolving]
  - Heart rate increased [Recovering/Resolving]
  - Hyperhidrosis [Recovering/Resolving]
  - Memory impairment [Recovering/Resolving]
  - Mydriasis [Recovering/Resolving]
  - Palpitations [Recovering/Resolving]
  - Restlessness [Recovering/Resolving]
  - Tremor [Recovering/Resolving]
  - Visual impairment [Recovering/Resolving]
